FAERS Safety Report 6691936-X (Version None)
Quarter: 2010Q2

REPORT INFORMATION
  Report Type: 
  Country: None (occurrence: None)
  Receive Date: 20100422
  Receipt Date: 20100104
  Transmission Date: 20101027
  Serious: No
  Sender: FDA-Public Use
  Company Number: US-ASTRAZENECA-2010SE00131

PATIENT
  Age: 67 Year
  Sex: Female
  Weight: 67.6 kg

DRUGS (1)
  1. TOPROL-XL [Suspect]
     Indication: HYPERTENSION
     Route: 048

REACTIONS (6)
  - CONFUSIONAL STATE [None]
  - DYSPNOEA [None]
  - FALL [None]
  - PHOTOPSIA [None]
  - VISION BLURRED [None]
  - WEIGHT DECREASED [None]
